FAERS Safety Report 4494277-4 (Version None)
Quarter: 2004Q4

REPORT INFORMATION
  Report Type: 
  Country: None (occurrence: None)
  Receive Date: 20041102
  Receipt Date: 20041019
  Transmission Date: 20050328
  Serious: Yes (Other)
  Sender: FDA-Public Use
  Company Number: B0349085A

PATIENT
  Sex: Female

DRUGS (2)
  1. SEREVENT [Suspect]
  2. COMBIVENT [Suspect]

REACTIONS (3)
  - CONVULSION [None]
  - MUSCLE SPASMS [None]
  - SEDATION [None]
